FAERS Safety Report 6057134-8 (Version None)
Quarter: 2009Q1

REPORT INFORMATION
  Report Type: 
  Country: None (occurrence: None)
  Receive Date: 20090129
  Receipt Date: 20090120
  Transmission Date: 20090719
  Serious: Yes (Other)
  Sender: FDA-Public Use
  Company Number: US-AVENTIS-200718328US

PATIENT
  Sex: Male

DRUGS (48)
  1. KETEK [Suspect]
     Indication: SINUSITIS
     Route: 048
     Dates: start: 20061001
  2. KETEK [Suspect]
     Route: 048
     Dates: start: 20061211, end: 20061214
  3. KETEK [Suspect]
     Dates: start: 20041001
  4. KETEK [Suspect]
     Dosage: DOSE: UNK
     Dates: start: 20041101
  5. KETEK [Suspect]
     Indication: RESPIRATORY TRACT INFECTION
     Route: 048
     Dates: start: 20061001
  6. KETEK [Suspect]
     Route: 048
     Dates: start: 20061211, end: 20061214
  7. KETEK [Suspect]
     Dates: start: 20041001
  8. KETEK [Suspect]
     Dosage: DOSE: UNK
     Dates: start: 20041101
  9. ZYRTEC [Concomitant]
     Dosage: DOSE: UNK
  10. DECONGEX PLUS [Concomitant]
     Indication: NASAL CONGESTION
     Dosage: DOSE: UNK
  11. ROBITUSSIN                         /00288801/ [Concomitant]
     Dosage: DOSE: UNK
  12. PERCOCET [Concomitant]
     Dosage: DOSE: 5/325
  13. PERCOCET [Concomitant]
     Dosage: DOSE: 5/325MG
     Dates: start: 20070128, end: 20070227
  14. TRAMADOL HCL [Concomitant]
     Dosage: DOSE: UNK
  15. AMBIEN [Concomitant]
     Dosage: DOSE: UNK
  16. LUNESTA [Concomitant]
     Dosage: DOSE: UNK
     Dates: start: 20061006
  17. HYDROMORPHONE HCL [Concomitant]
     Dosage: DOSE: UNK
  18. DOXYCYCLINE [Concomitant]
     Dosage: DOSE: UNK
     Dates: start: 20061011
  19. PHENAZOPYRIDINE HCL TAB [Concomitant]
     Dosage: DOSE: UNK
  20. CYCLOBENZAPRINE HCL [Concomitant]
     Dosage: DOSE: UNK
  21. CARISOPRODOL [Concomitant]
     Dosage: DOSE: UNK
  22. ALPRAZOLAM [Concomitant]
     Dosage: DOSE: UNK
  23. XANAX [Concomitant]
     Dosage: DOSE: UNK
  24. DILAUDID [Concomitant]
     Dosage: DOSE: UNK
  25. CLARITHROMYCIN [Concomitant]
     Dosage: DOSE: ^ER^ 500 MG, 2 TABS ONCE DAILY WITH FOOD AND WATER
     Dates: start: 20070118
  26. ANALGESICS [Concomitant]
     Dosage: DOSE: UNK
  27. LEVAQUIN [Concomitant]
     Dosage: DOSE: 7 SAMPLES GIVEN, 1 PER DAY
     Dates: start: 20061214
  28. LEVAQUIN [Concomitant]
     Dosage: DOSE: UNK
     Dates: start: 20070118
  29. BACTROBAN [Concomitant]
     Dosage: DOSE: UNK
     Dates: start: 20070226
  30. HYDROXYZINE PAM [Concomitant]
     Dosage: DOSE: UNK
     Dates: start: 20070404
  31. DIAZEPAM [Concomitant]
     Dosage: DOSE: UNK
     Dates: start: 20070604
  32. MELOXICAM [Concomitant]
     Dosage: DOSE: UNK
     Dates: start: 20070711
  33. VERSED [Concomitant]
     Route: 042
     Dates: start: 20061122
  34. ANCEF                              /00288502/ [Concomitant]
     Dosage: DOSE: ONE GRAM
     Route: 042
     Dates: start: 20061122
  35. MORPHINE [Concomitant]
     Dosage: DOSE: UNK
     Dates: start: 20061101
  36. OXYCODONE [Concomitant]
     Dosage: DOSE: UNK
     Dates: start: 20061101
  37. TYLENOL [Concomitant]
     Dates: start: 20061211
  38. RHINOCORT [Concomitant]
     Dates: start: 20061201
  39. RHINOCORT [Concomitant]
     Dosage: DOSE: ONE SQUIRT EACH NOSTRIL DAILY
     Route: 045
     Dates: start: 20070118
  40. TYLENOL (CAPLET) [Concomitant]
     Dosage: DOSE: UNK
     Dates: start: 20070118
  41. ANZEMET [Concomitant]
     Dosage: DOSE QUANTITY: 12.5
     Dates: start: 20061122
  42. DECADRON [Concomitant]
     Dates: start: 20061122
  43. FENTANYL CITRATE [Concomitant]
     Dates: start: 20061122
  44. PROPOFOL [Concomitant]
     Dosage: DOSE QUANTITY: 200
     Dates: start: 20061122
  45. XYLOCAINE [Concomitant]
     Dosage: DOSE QUANTITY: 100
     Dates: start: 20061122
  46. ACETAMINOPHEN [Concomitant]
     Dosage: DOSE: 650MG Q6H PRN
     Dates: start: 20070127, end: 20070226
  47. AVELOX [Concomitant]
     Route: 048
     Dates: start: 20070131, end: 20070213
  48. VANCOMYCIN [Concomitant]
     Dosage: DOSE: UNK
     Route: 042
     Dates: start: 20070129, end: 20070131

REACTIONS (7)
  - ABDOMINAL DISCOMFORT [None]
  - DIARRHOEA [None]
  - GAMMA-GLUTAMYLTRANSFERASE INCREASED [None]
  - GASTROENTERITIS [None]
  - HEPATIC FUNCTION ABNORMAL [None]
  - HEPATIC STEATOSIS [None]
  - SPLENOMEGALY [None]
